FAERS Safety Report 7796017-X (Version None)
Quarter: 2011Q4

REPORT INFORMATION
  Report Type: 
  Country: None (occurrence: None)
  Receive Date: 20111004
  Receipt Date: 20110930
  Transmission Date: 20120403
  Serious: Yes (Hospitalization)
  Sender: FDA-Public Use
  Company Number: JP-PFIZER INC-2011070129

PATIENT
  Age: 62 Year
  Sex: Male
  Weight: 70 kg

DRUGS (16)
  1. TOLTERODINE TARTRATE [Suspect]
     Indication: HYPERTONIC BLADDER
     Dosage: 4 MG, 1X/DAY
     Route: 048
     Dates: start: 20101119, end: 20110326
  2. MAGNESIUM SULFATE [Suspect]
     Indication: CONSTIPATION
     Dosage: 330 MG, 2X/DAY
     Route: 048
     Dates: start: 20080901, end: 20110327
  3. PREGABALIN [Suspect]
     Indication: PAIN
     Dosage: 75 MG, 2X/DAY
     Route: 048
     Dates: start: 20101025, end: 20110327
  4. BROTIZOLAM [Suspect]
     Indication: INSOMNIA
     Dosage: 0.25 MG, 1X/DAY
     Route: 048
     Dates: start: 20090513, end: 20110327
  5. LIVOSTIN [Suspect]
     Indication: CONJUNCTIVITIS ALLERGIC
     Dosage: 3 OR 4 TIMES DAILY
     Route: 031
     Dates: start: 20101001, end: 20110327
  6. BETAMETHASONE [Suspect]
     Dosage: UNK
     Route: 062
     Dates: start: 20110302, end: 20110327
  7. AMLODIPINE BESYLATE [Suspect]
     Indication: HYPERTENSION
     Dosage: 5 MG, 1X/DAY
     Route: 048
     Dates: start: 20081029, end: 20110327
  8. ZOLOFT [Suspect]
     Indication: DEPRESSION
     Dosage: 25 MG, 2X/DAY
     Route: 048
     Dates: start: 20080626, end: 20110327
  9. ISOSORBIDE DINITRATE [Suspect]
     Indication: ANGINA PECTORIS
     Dosage: 20 MG, 2X/DAY
     Route: 048
     Dates: start: 20080522, end: 20110327
  10. CYANOCOBALAMIN [Suspect]
     Indication: ASTHENOPIA
     Dosage: 3 OR 4 TIMES DAILY
     Route: 031
     Dates: start: 20101001, end: 20110327
  11. ALLEGRA D 24 HOUR [Suspect]
     Indication: PUSTULAR PSORIASIS
     Dosage: 60 MG, 2X/DAY
     Route: 048
     Dates: start: 20110302, end: 20110327
  12. KETOPROFEN [Suspect]
     Indication: BACK PAIN
     Dosage: UNK
     Route: 062
     Dates: start: 20080601, end: 20110327
  13. OLMESARTAN MEDOXOMIL [Suspect]
     Indication: HYPERTENSION
     Dosage: 20 MG, 1X/DAY
     Route: 048
     Dates: start: 20080501, end: 20110327
  14. BETAMETHASONE [Suspect]
     Indication: PUSTULAR PSORIASIS
     Dosage: UNK
     Dates: start: 20081024, end: 20110327
  15. PHENOBARBITAL TAB [Suspect]
     Indication: EPILEPSY
     Dosage: 30 MG, 3X/DAY
     Route: 048
     Dates: start: 20080101, end: 20110327
  16. LOXOPROFEN SODIUM [Suspect]
     Indication: PAIN
     Dosage: 60 MG, AS NEEDED
     Route: 048
     Dates: start: 20090507, end: 20110327

REACTIONS (1)
  - CEREBRAL HAEMORRHAGE [None]
